FAERS Safety Report 7722116-4 (Version None)
Quarter: 2011Q3

REPORT INFORMATION
  Report Type: 
  Country: None (occurrence: None)
  Receive Date: 20110831
  Receipt Date: 20110824
  Transmission Date: 20111222
  Serious: Yes (Hospitalization, Other)
  Sender: FDA-Public Use
  Company Number: US-BAYER-2011-026104

PATIENT
  Age: 19 Year
  Sex: Female
  Weight: 70.295 kg

DRUGS (3)
  1. YAZ [Suspect]
     Indication: PREMENSTRUAL SYNDROME
     Dosage: UNK
     Route: 048
     Dates: start: 20071107, end: 20080120
  2. COUMADIN [Concomitant]
     Dosage: UNK
     Dates: start: 20080101
  3. LOVENOX [Concomitant]
     Dosage: UNK
     Dates: start: 20080120

REACTIONS (4)
  - ABORTION [None]
  - MENTAL DISORDER [None]
  - INFERTILITY FEMALE [None]
  - PULMONARY EMBOLISM [None]
